FAERS Safety Report 22392330 (Version 3)
Quarter: 2023Q2

REPORT INFORMATION
  Report Type: Report from Study
  Country: BR (occurrence: BR)
  Receive Date: 20230601
  Receipt Date: 20230607
  Transmission Date: 20230722
  Serious: Yes (Death, Hospitalization, Other)
  Sender: FDA-Public Use
  Company Number: BR-002147023-NVSC2023BR124320

PATIENT
  Sex: Female

DRUGS (1)
  1. KISQALI [Suspect]
     Active Substance: RIBOCICLIB
     Indication: Breast cancer
     Dosage: UNK (STOPPED ON LAST FRIDAY)
     Route: 065

REACTIONS (7)
  - Pneumonitis [Fatal]
  - Hypoxia [Fatal]
  - Deep vein thrombosis [Fatal]
  - Metastatic neoplasm [Fatal]
  - Nicotine dependence [Fatal]
  - Respiratory disorder [Not Recovered/Not Resolved]
  - Lung disorder [Unknown]
